FAERS Safety Report 9009724 (Version 3)
Quarter: 2013Q4

REPORT INFORMATION
  Report Type: Spontaneous
  Country: US (occurrence: US)
  Receive Date: 20130110
  Receipt Date: 20131231
  Transmission Date: 20140711
  Serious: Yes (Hospitalization)
  Sender: FDA-Public Use
  Company Number: US-BAYER-2013-003297

PATIENT
  Age: 30 Year
  Sex: Female
  Weight: 96.15 kg

DRUGS (6)
  1. YAZ [Suspect]
     Dosage: UNK
     Dates: start: 201003, end: 201005
  2. KEFLEX [Concomitant]
  3. IBUPROFEN [Concomitant]
  4. VICODIN [Concomitant]
  5. MORPHINE [Concomitant]
     Indication: ANALGESIC THERAPY
  6. ZOFRAN [Concomitant]
     Indication: VOMITING

REACTIONS (4)
  - Deep vein thrombosis [Recovered/Resolved]
  - Pain [Recovered/Resolved]
  - Injury [Recovered/Resolved]
  - Mental disorder [None]
